FAERS Safety Report 10332987 (Version 2)
Quarter: 2014Q3

REPORT INFORMATION
  Report Type: Report from Study
  Country: US (occurrence: US)
  Receive Date: 20140722
  Receipt Date: 20140730
  Transmission Date: 20150326
  Serious: Yes (Death, Hospitalization, Other)
  Sender: FDA-Public Use
  Company Number: US-EXELIXIS-XL18414004528

PATIENT
  Age: 68 Year
  Sex: Male
  Weight: 103 kg

DRUGS (6)
  1. AGGRENOX [Concomitant]
     Active Substance: ASPIRIN\DIPYRIDAMOLE
  2. LORCET [Concomitant]
     Active Substance: ACETAMINOPHEN\HYDROCODONE BITARTRATE
  3. COLACE [Concomitant]
     Active Substance: DOCUSATE SODIUM
  4. COENZYME Q10 [Concomitant]
     Active Substance: UBIDECARENONE
  5. XL184 [Suspect]
     Active Substance: CABOZANTINIB
     Indication: RENAL CELL CARCINOMA
     Dosage: 60, MG QD
     Route: 048
     Dates: start: 20140619, end: 20140623
  6. VITAMIN B12 [Concomitant]
     Active Substance: CYANOCOBALAMIN

REACTIONS (4)
  - Vasculitis [Unknown]
  - Blood creatinine increased [Unknown]
  - Renal failure acute [Fatal]
  - Dehydration [Unknown]

NARRATIVE: CASE EVENT DATE: 20140623
